FAERS Safety Report 5192860-4 (Version None)
Quarter: 2006Q4

REPORT INFORMATION
  Report Type: 
  Country: None (occurrence: None)
  Receive Date: 20061228
  Receipt Date: 20060111
  Transmission Date: 20070319
  Serious: No
  Sender: FDA-Public Use
  Company Number: US-GLAXOSMITHKLINE-A0588818A

PATIENT
  Age: 78 Year
  Sex: Female
  Weight: 59 kg

DRUGS (8)
  1. FLONASE [Suspect]
     Dosage: 2PUFF PER DAY
     Route: 045
     Dates: end: 20051129
  2. LORATADINE [Concomitant]
  3. ASTELIN [Concomitant]
  4. FOSAMAX [Concomitant]
  5. RANITIDINE [Concomitant]
  6. LIDODERM PATCH [Concomitant]
  7. PRILOSEC [Concomitant]
  8. ZETIA [Concomitant]

REACTIONS (1)
  - EPISTAXIS [None]
